FAERS Safety Report 6237737-8 (Version None)
Quarter: 2009Q2

REPORT INFORMATION
  Report Type: 
  Country: None (occurrence: None)
  Receive Date: 20090618
  Receipt Date: 20090605
  Transmission Date: 20091009
  Serious: Yes (Other)
  Sender: FDA-Public Use
  Company Number: 231287J07USA

PATIENT
  Age: 56 Year
  Sex: Male
  Weight: 100 kg

DRUGS (4)
  1. REBIF [Suspect]
     Indication: MULTIPLE SCLEROSIS
     Dosage: 44 MCG, 3 IN 1 WEEKS, SUBCUTANEOUS
     Route: 058
     Dates: start: 20070609, end: 20090207
  2. HIGH CHOLESTEROL MEDICATION (CHOLESTEROL-AND TRIGLYCERIDE REDUCERS) [Suspect]
     Indication: BLOOD CHOLESTEROL INCREASED
     Dates: start: 20070601, end: 20090101
  3. UNSPECIFIED HIGH BLOOD PRESSURE MEDICATION (ALL OTHER THERAPEUTIC PROD [Concomitant]
  4. HIGH CHOLESTEROL MEDICATION (CHOLESTEROL AND TRIGLYCERIDE REDUCERS) [Concomitant]

REACTIONS (3)
  - ALANINE AMINOTRANSFERASE INCREASED [None]
  - AORTIC ANEURYSM [None]
  - ASPARTATE AMINOTRANSFERASE INCREASED [None]
